FAERS Safety Report 17901890 (Version 1)
Quarter: 2020Q2

REPORT INFORMATION
  Report Type: Spontaneous
  Country: JP (occurrence: JP)
  Receive Date: 20200616
  Receipt Date: 20200616
  Transmission Date: 20200714
  Serious: Yes (Death, Hospitalization, Other)
  Sender: FDA-Public Use
  Company Number: JP-PFIZER INC-HQ8742322MAR2001

PATIENT
  Age: 75 Year
  Sex: Female

DRUGS (7)
  1. BUCILLAMINE [Concomitant]
     Active Substance: BUCILLAMINE
     Indication: RHEUMATOID ARTHRITIS
     Dosage: 300 MG, DAILY
     Dates: start: 1989, end: 1990
  2. METHOTREXATE. [Interacting]
     Active Substance: METHOTREXATE
     Dosage: 7.5 MG, WEEKLY
     Dates: end: 19930907
  3. SULINDAC. [Interacting]
     Active Substance: SULINDAC
     Indication: RHEUMATOID ARTHRITIS
     Dosage: 200 MG, 1X/DAY
  4. BUCILLAMINE [Concomitant]
     Active Substance: BUCILLAMINE
     Dosage: 100 MG, DAILY
     Dates: start: 1990
  5. PREDNISOLONE. [Concomitant]
     Active Substance: PREDNISOLONE
     Indication: RHEUMATOID ARTHRITIS
     Dosage: 5 MG, DAILY
     Dates: start: 1988, end: 19930923
  6. PREDNISOLONE. [Concomitant]
     Active Substance: PREDNISOLONE
     Dosage: UNK
     Dates: start: 19930923
  7. METHOTREXATE. [Suspect]
     Active Substance: METHOTREXATE
     Indication: RHEUMATOID ARTHRITIS
     Dosage: 5 MG, WEEKLY
     Dates: start: 1990

REACTIONS (10)
  - Condition aggravated [Not Recovered/Not Resolved]
  - Hepatic function abnormal [Not Recovered/Not Resolved]
  - Hepatitis B reactivation [Fatal]
  - Hepatic encephalopathy [Fatal]
  - Ascites [Not Recovered/Not Resolved]
  - Pericardial effusion [Not Recovered/Not Resolved]
  - Acute hepatitis B [Fatal]
  - Drug level above therapeutic [Unknown]
  - Renal impairment [Not Recovered/Not Resolved]
  - Drug interaction [Not Recovered/Not Resolved]

NARRATIVE: CASE EVENT DATE: 1993
